FAERS Safety Report 14603864 (Version 2)
Quarter: 2020Q1

REPORT INFORMATION
  Report Type: Report from Study
  Country: US (occurrence: US)
  Receive Date: 20180306
  Receipt Date: 20200227
  Transmission Date: 20200409
  Serious: Yes (Hospitalization)
  Sender: FDA-Public Use
  Company Number: US-AEGERION PHARMACEUTICAL, INC-AEGR003384

PATIENT
  Age: 19 Year
  Sex: Female

DRUGS (18)
  1. LEVONORGESTREL. [Concomitant]
     Active Substance: LEVONORGESTREL
     Indication: PRODUCT USED FOR UNKNOWN INDICATION
     Dosage: 52 MG, UNK
     Route: 015
     Dates: start: 20170328, end: 2018
  2. PANCRELIPASE 20000 [Concomitant]
     Indication: PRODUCT USED FOR UNKNOWN INDICATION
     Dosage: 20000 UNITS, 4X PER DAY
     Route: 048
     Dates: start: 20190306
  3. NAPROXEN. [Concomitant]
     Active Substance: NAPROXEN
     Indication: ARTHRALGIA
     Dosage: 250 MG, PRN Q 12 HOURS
     Route: 048
  4. PANTOPRAZOLE [Concomitant]
     Active Substance: PANTOPRAZOLE
     Indication: PRODUCT USED FOR UNKNOWN INDICATION
     Dosage: 40 MG, QD
     Route: 048
     Dates: start: 20190304
  5. HUMULIN R [Concomitant]
     Active Substance: INSULIN HUMAN
     Indication: PRODUCT USED FOR UNKNOWN INDICATION
     Dosage: U-500 INSULIN, TID BEFORE MEALS (SLIDING SCALE)
     Route: 058
     Dates: start: 20170328
  6. FENOFIBRATE. [Concomitant]
     Active Substance: FENOFIBRATE
     Indication: PRODUCT USED FOR UNKNOWN INDICATION
     Dosage: 145 MG, QD
     Route: 048
  7. CHOLECALCIFEROL [Concomitant]
     Active Substance: CHOLECALCIFEROL
     Indication: PRODUCT USED FOR UNKNOWN INDICATION
     Dosage: 2000 IU, QD
     Route: 048
     Dates: start: 20140307, end: 2017
  8. HUMULIN R [Concomitant]
     Active Substance: INSULIN HUMAN
     Dosage: BG 70-124 GIVE 100 UNITS; BG 125-149 GIVE 150 UNITS; BG 150-199 GIVE 200 UNITS; BG } 200 GIVE 250 UN
     Dates: start: 20190303
  9. LEVONORGESTREL. [Concomitant]
     Active Substance: LEVONORGESTREL
     Dosage: 52 UNK, UNK
     Route: 015
     Dates: start: 20190306
  10. METRELEPTIN [Suspect]
     Active Substance: METRELEPTIN
     Indication: PARTIAL LIPODYSTROPHY
     Dosage: 5 MG (1 ML), BID
     Route: 058
     Dates: start: 20130610, end: 20170821
  11. METRELEPTIN [Suspect]
     Active Substance: METRELEPTIN
     Dosage: 5 MG (1 ML), BID
     Route: 058
     Dates: start: 20170928
  12. METFORMIN [Concomitant]
     Active Substance: METFORMIN HYDROCHLORIDE
     Indication: PRODUCT USED FOR UNKNOWN INDICATION
     Dosage: 1000 MG, BID
     Route: 048
     Dates: start: 20170328
  13. HUMULIN R [Concomitant]
     Active Substance: INSULIN HUMAN
     Dosage: BEFORE BREAKFAST: BG 120-174, GIVE 50 UNITS, BG 175-249, GIVE 60 UNITS, BG } 249, GIVE 80 UNITS
     Dates: end: 20190303
  14. PHENERGAN [Concomitant]
     Active Substance: PROMETHAZINE HYDROCHLORIDE
     Indication: PRODUCT USED FOR UNKNOWN INDICATION
     Dosage: 12.5 MG, PRN
     Route: 048
  15. ATORVASTATIN [Concomitant]
     Active Substance: ATORVASTATIN
     Indication: PRODUCT USED FOR UNKNOWN INDICATION
     Dosage: 20 MG, QD
     Route: 048
     Dates: start: 20190304
  16. HUMULIN R [Concomitant]
     Active Substance: INSULIN HUMAN
     Dosage: BEFORE DINNER: BG 150-199, GIVE 40 UNITS, BG 200-249, GIVE 50 UNITS, BG } 249, GIVE 60 UNITS
     Dates: end: 20190303
  17. LISINOPRIL. [Concomitant]
     Active Substance: LISINOPRIL
     Indication: PRODUCT USED FOR UNKNOWN INDICATION
     Dosage: 10 MG, QD
     Route: 048
     Dates: start: 20170328
  18. CALCIUM CARBONATE. [Concomitant]
     Active Substance: CALCIUM CARBONATE
     Indication: PRODUCT USED FOR UNKNOWN INDICATION
     Dosage: 1250 MG, BID
     Route: 048
     Dates: start: 20170328, end: 20170328

REACTIONS (1)
  - Pancreatitis acute [Recovered/Resolved]

NARRATIVE: CASE EVENT DATE: 20170925
